FAERS Safety Report 6523354-9 (Version None)
Quarter: 2009Q4

REPORT INFORMATION
  Report Type: 
  Country: None (occurrence: None)
  Receive Date: 20091231
  Receipt Date: 20091223
  Transmission Date: 20100525
  Serious: Yes (Hospitalization)
  Sender: FDA-Public Use
  Company Number: FR-BRISTOL-MYERS SQUIBB COMPANY-14266167

PATIENT
  Age: 64 Year

DRUGS (4)
  1. CETUXIMAB [Suspect]
     Indication: COLON CANCER
     Dosage: 5MG/ML. 250 MG/M2 FROM 11MAR08-22APR08 (41 DAYS), THEN REDUCED TO 250 MG/M2 FROM 06MAY08.
     Route: 042
     Dates: start: 20080311, end: 20080422
  2. OXALIPLATIN [Suspect]
     Indication: COLON CANCER
     Dosage: FROM 11MAR08-22APR08(41 DAYS), AGAIN FROM 06MAY08,14MAY08-ONG
     Route: 042
     Dates: start: 20080311, end: 20080422
  3. FLUOROURACIL [Suspect]
     Indication: COLON CANCER
     Dosage: FROM 11MAR08-23APR08 (42 DAYS), AGAIN FROM 06MAY08,14MAY08-ONG
     Route: 042
     Dates: start: 20080311, end: 20080423
  4. FOLINIC ACID [Suspect]
     Indication: COLON CANCER
     Dosage: FROM 11MAR08-23APR08 (42 DAYS), AGAIN FROM 06MAY08,14MAY08-ONG
     Route: 042
     Dates: start: 20080311, end: 20080423

REACTIONS (1)
  - ANAL FISSURE [None]
